FAERS Safety Report 16726795 (Version 2)
Quarter: 2020Q1

REPORT INFORMATION
  Report Type: Spontaneous
  Country: CA (occurrence: CA)
  Receive Date: 20190821
  Receipt Date: 20200224
  Transmission Date: 20200409
  Serious: Yes (Other)
  Sender: FDA-Public Use
  Company Number: CA-PFM-2019-10083

PATIENT
  Age: 20 Month
  Sex: Female

DRUGS (4)
  1. AMIODARONE [Concomitant]
     Active Substance: AMIODARONE
     Indication: NODAL ARRHYTHMIA
  2. DIGOXIN. [Concomitant]
     Active Substance: DIGOXIN
     Indication: NODAL ARRHYTHMIA
  3. PROPRANOLOL [Suspect]
     Active Substance: PROPRANOLOL HYDROCHLORIDE
  4. GLUCAGON. [Suspect]
     Active Substance: GLUCAGON
     Indication: NODAL ARRHYTHMIA
     Dosage: 0.12 MG/KG, UNK
     Route: 065

REACTIONS (7)
  - Off label use [Unknown]
  - Product administered to patient of inappropriate age [Unknown]
  - Urine ketone body present [Recovered/Resolved]
  - Product use in unapproved indication [Unknown]
  - Hypoglycaemia [Recovered/Resolved]
  - Hypoglycaemic seizure [Recovered/Resolved]
  - Extra dose administered [Unknown]
